FAERS Safety Report 18327689 (Version 2)
Quarter: 2020Q4

REPORT INFORMATION
  Report Type: Spontaneous
  Country: US (occurrence: US)
  Receive Date: 20200930
  Receipt Date: 20201016
  Transmission Date: 20210113
  Serious: Yes (Other)
  Sender: FDA-Public Use
  Company Number: US-DRREDDYS-USA/USA/20/0127332

PATIENT
  Age: 18 Year
  Sex: Female

DRUGS (1)
  1. ZENATANE [Suspect]
     Active Substance: ISOTRETINOIN
     Indication: PRODUCT USED FOR UNKNOWN INDICATION
     Dosage: RMA ISSUE DATE: 7/24/2020 12:00:00 AM 30 MG,  8/20/2020 12:00:00 AM 30 MG,
     Route: 048
     Dates: start: 20200625, end: 20200918

REACTIONS (1)
  - Exposure during pregnancy [Unknown]
